FAERS Safety Report 13430572 (Version 2)
Quarter: 2017Q2

REPORT INFORMATION
  Report Type: Spontaneous
  Country: US (occurrence: US)
  Receive Date: 20170412
  Receipt Date: 20170425
  Transmission Date: 20170830
  Serious: No
  Sender: FDA-Public Use
  Company Number: US-PFIZER INC-2017155929

PATIENT
  Age: 55 Year
  Sex: Female

DRUGS (1)
  1. SUTENT [Suspect]
     Active Substance: SUNITINIB MALATE
     Indication: GASTROINTESTINAL STROMAL TUMOUR
     Dosage: 37.5 MG, DAILY
     Dates: start: 20170225

REACTIONS (15)
  - Pain in extremity [Unknown]
  - Asthenia [Unknown]
  - Dysgeusia [Unknown]
  - Weight decreased [Unknown]
  - Oral discomfort [Unknown]
  - Hyperhidrosis [Unknown]
  - Flushing [Unknown]
  - Hot flush [Unknown]
  - Skin discolouration [Unknown]
  - Oral pain [Unknown]
  - Fatigue [Unknown]
  - Feeling abnormal [Unknown]
  - Burning sensation [Unknown]
  - Blood glucose decreased [Unknown]
  - Increased appetite [Unknown]
